FAERS Safety Report 23458199 (Version 2)
Quarter: 2024Q1

REPORT INFORMATION
  Report Type: Spontaneous
  Country: CA (occurrence: CA)
  Receive Date: 20240130
  Receipt Date: 20240308
  Transmission Date: 20240410
  Serious: Yes (Other)
  Sender: FDA-Public Use
  Company Number: CA-PFIZER INC-202300166719

PATIENT
  Age: 33 Year
  Sex: Female
  Weight: 54 kg

DRUGS (3)
  1. RUXIENCE [Suspect]
     Active Substance: RITUXIMAB-PVVR
     Indication: Multiple sclerosis
     Dosage: 1000 MG, Q 2 WEEKS X 2 DOSES THEN 1000MG IV Q 6MONTHS
     Route: 042
     Dates: start: 20231031, end: 20231031
  2. RUXIENCE [Suspect]
     Active Substance: RITUXIMAB-PVVR
     Dosage: 1000 MG, Q 2 WEEKS X 2 DOSES
     Route: 042
     Dates: start: 20231116
  3. SOLU-MEDROL [Concomitant]
     Active Substance: METHYLPREDNISOLONE SODIUM SUCCINATE
     Dosage: UNK

REACTIONS (23)
  - Mobility decreased [Not Recovered/Not Resolved]
  - Musculoskeletal stiffness [Not Recovered/Not Resolved]
  - Pain in extremity [Not Recovered/Not Resolved]
  - Arthralgia [Unknown]
  - Throat tightness [Recovering/Resolving]
  - Palpitations [Recovering/Resolving]
  - Neck pain [Unknown]
  - Back pain [Unknown]
  - Lip erythema [Recovered/Resolved]
  - Lip disorder [Not Recovered/Not Resolved]
  - Lip swelling [Unknown]
  - Depression [Not Recovered/Not Resolved]
  - Skin disorder [Not Recovered/Not Resolved]
  - Malaise [Unknown]
  - Chest pain [Not Recovered/Not Resolved]
  - Insomnia [Unknown]
  - Dyspnoea [Recovering/Resolving]
  - Flushing [Not Recovered/Not Resolved]
  - Pyrexia [Recovered/Resolved]
  - Headache [Recovering/Resolving]
  - Anxiety [Not Recovered/Not Resolved]
  - Sinusitis [Unknown]
  - Off label use [Unknown]

NARRATIVE: CASE EVENT DATE: 20230101
